FAERS Safety Report 7782595-3 (Version None)
Quarter: 2011Q3

REPORT INFORMATION
  Report Type: 
  Country: None (occurrence: None)
  Receive Date: 20110927
  Receipt Date: 20110927
  Transmission Date: 20111222
  Serious: Yes (Other)
  Sender: FDA-Public Use
  Company Number: None

PATIENT
  Age: 92 Year
  Sex: Female

DRUGS (1)
  1. FLEBOGAMMA [Suspect]
     Indication: DEMYELINATING POLYNEUROPATHY
     Dosage: 40 GRAMS IV
     Route: 042
     Dates: start: 20110815

REACTIONS (7)
  - PRODUCT SUBSTITUTION ISSUE [None]
  - FEELING ABNORMAL [None]
  - INFUSION RELATED REACTION [None]
  - NAUSEA [None]
  - BLOOD PRESSURE INCREASED [None]
  - CHILLS [None]
  - SKIN DISCOLOURATION [None]
